FAERS Safety Report 25321762 (Version 1)
Quarter: 2025Q2

REPORT INFORMATION
  Report Type: Report from Study
  Country: KW (occurrence: KW)
  Receive Date: 20250516
  Receipt Date: 20250516
  Transmission Date: 20250716
  Serious: Yes (Hospitalization, Other)
  Sender: SANDOZ
  Company Number: KW-SANDOZ-SDZ2025KW031819

PATIENT
  Age: 38 Year
  Sex: Female

DRUGS (1)
  1. HYRIMOZ [Suspect]
     Active Substance: ADALIMUMAB-ADAZ
     Indication: Rheumatoid arthritis
     Dosage: 40 MG, Q2W
     Route: 058
     Dates: start: 20240811, end: 202501

REACTIONS (6)
  - Cerebrovascular accident [Recovering/Resolving]
  - Myocardial infarction [Recovering/Resolving]
  - Renal impairment [Unknown]
  - Renal colic [Recovering/Resolving]
  - Treatment noncompliance [Unknown]
  - Product availability issue [Unknown]

NARRATIVE: CASE EVENT DATE: 20250213
